FAERS Safety Report 4277906-X (Version None)
Quarter: 2004Q1

REPORT INFORMATION
  Report Type: 
  Country: None (occurrence: None)
  Receive Date: 20040123
  Receipt Date: 20031029
  Transmission Date: 20041129
  Serious: Yes (Other)
  Sender: FDA-Public Use
  Company Number: US-GLAXOSMITHKLINE-A0439087A

PATIENT
  Age: 2 Year
  Sex: Male

DRUGS (3)
  1. AVANDIA [Suspect]
     Route: 048
  2. LOTENSIN [Suspect]
     Route: 048
  3. SOMA [Suspect]
     Route: 048

REACTIONS (6)
  - ACCIDENTAL EXPOSURE [None]
  - ADVERSE EVENT [None]
  - CHOKING [None]
  - COUGH [None]
  - CRYING [None]
  - SOMNOLENCE [None]
